FAERS Safety Report 10215967 (Version 1)
Quarter: 2014Q2

REPORT INFORMATION
  Report Type: Spontaneous
  Country: US (occurrence: None)
  Receive Date: 20140603
  Receipt Date: 20140603
  Transmission Date: 20141212
  Serious: No
  Sender: FDA-Public Use
  Company Number: None

PATIENT
  Sex: Female

DRUGS (1)
  1. COPAXONE 20 MG INJECTION KI [Suspect]

REACTIONS (10)
  - Depression [None]
  - Decreased appetite [None]
  - Fatigue [None]
  - Asthenia [None]
  - Feeling abnormal [None]
  - Disturbance in attention [None]
  - Self injurious behaviour [None]
  - Slow speech [None]
  - Initial insomnia [None]
  - Hypersomnia [None]
